FAERS Safety Report 8721518 (Version 4)
Quarter: 2012Q4

REPORT INFORMATION
  Report Type: 
  Country: JP (occurrence: JP)
  Receive Date: 20120813
  Receipt Date: 20121106
  Transmission Date: 20130627
  Serious: Yes (Hospitalization, Other)
  Sender: FDA-Public Use
  Company Number: JP-GILEAD-2012-0059640

PATIENT
  Sex: Female

DRUGS (9)
  1. HEPSERA [Suspect]
     Indication: HEPATITIS B
     Dosage: 10MG Per day
     Route: 048
     Dates: start: 20080110, end: 20120817
  2. HEPSERA [Suspect]
     Dosage: 10MG Per day
     Route: 048
     Dates: start: 20080110, end: 20120817
  3. PREMARIN [Suspect]
     Indication: PRODUCT USED FOR UNKNOWN INDICATION
     Route: 048
  4. PREMARIN [Suspect]
     Route: 048
  5. LUTORAL [Suspect]
     Indication: PRODUCT USED FOR UNKNOWN INDICATION
     Route: 048
  6. LUTORAL [Suspect]
     Route: 048
  7. ZEFIX [Concomitant]
     Indication: HEPATITIS B
     Route: 048
  8. BARACLUDE [Concomitant]
     Indication: HEPATITIS B
     Route: 048
     Dates: start: 20110711
  9. BARACLUDE [Concomitant]
     Dosage: .5MG Per day
     Route: 048
     Dates: start: 20110117

REACTIONS (14)
  - Weight decreased [Unknown]
  - Renal tubular acidosis [Recovering/Resolving]
  - Fanconi syndrome acquired [Recovering/Resolving]
  - pH urine decreased [Unknown]
  - Back pain [Unknown]
  - Arthralgia [Unknown]
  - Hyperchloraemia [Unknown]
  - Blood phosphorus decreased [Unknown]
  - Glucose urine present [Unknown]
  - Protein urine present [Unknown]
  - PCO2 decreased [Unknown]
  - Muscular weakness [Not Recovered/Not Resolved]
  - Metabolic acidosis [None]
  - Blood potassium decreased [None]
